FAERS Safety Report 4319386-1 (Version None)
Quarter: 2004Q1

REPORT INFORMATION
  Report Type: 
  Country: None (occurrence: None)
  Receive Date: 20040319
  Receipt Date: 20040312
  Transmission Date: 20041129
  Serious: Yes (Life-Threatening, Hospitalization)
  Sender: FDA-Public Use
  Company Number: 200413176GDDC

PATIENT
  Age: 64 Year
  Sex: Female

DRUGS (5)
  1. ARAVA [Suspect]
     Indication: RHEUMATOID ARTHRITIS
     Route: 048
     Dates: start: 20031209, end: 20040205
  2. METHOTREXATE [Concomitant]
     Indication: ARTHRITIS
     Route: 065
     Dates: start: 20030328, end: 20040206
  3. VIOXX [Concomitant]
     Indication: ARTHRITIS
     Route: 048
  4. FOLIC ACID [Concomitant]
     Route: 048
  5. IMOVANE [Concomitant]
     Route: 048

REACTIONS (6)
  - ANAEMIA [None]
  - BONE MARROW DEPRESSION [None]
  - FEBRILE NEUTROPENIA [None]
  - HEPATIC FAILURE [None]
  - RENAL FAILURE [None]
  - SEPSIS [None]
